FAERS Safety Report 6731121-6 (Version None)
Quarter: 2010Q2

REPORT INFORMATION
  Report Type: 
  Country: None (occurrence: None)
  Receive Date: 20100518
  Receipt Date: 20100405
  Transmission Date: 20101027
  Serious: No
  Sender: FDA-Public Use
  Company Number: A0853500A

PATIENT
  Age: 59 Year
  Sex: Male

DRUGS (4)
  1. COREG CR [Suspect]
     Indication: DRUG USE FOR UNKNOWN INDICATION
     Dosage: 20MG PER DAY
     Route: 048
     Dates: start: 20100311
  2. DYNACIRC CR [Suspect]
     Dosage: 5MG PER DAY
     Route: 048
     Dates: start: 20100301
  3. LOVAZA [Suspect]
     Dosage: 4CAP PER DAY
     Route: 048
     Dates: start: 20100301
  4. NO CONCURRENT MEDICATION [Concomitant]

REACTIONS (1)
  - MALAISE [None]
